FAERS Safety Report 11397206 (Version 1)
Quarter: 2015Q3

REPORT INFORMATION
  Report Type: Spontaneous
  Country: US (occurrence: US)
  Receive Date: 20150819
  Receipt Date: 20150819
  Transmission Date: 20151125
  Serious: Yes (Other)
  Sender: FDA-Public Use
  Company Number: US-PFIZER INC-2015272311

PATIENT
  Age: 67 Year
  Sex: Female
  Weight: 90.7 kg

DRUGS (1)
  1. DETROL LA [Suspect]
     Active Substance: TOLTERODINE TARTRATE
     Dosage: UNK

REACTIONS (6)
  - Malaise [Unknown]
  - Stress [Unknown]
  - Mental impairment [Unknown]
  - Herpes zoster [Unknown]
  - Diabetes mellitus [Unknown]
  - Memory impairment [Unknown]
